FAERS Safety Report 9457981 (Version 1)
Quarter: 2013Q3

REPORT INFORMATION
  Report Type: Spontaneous
  Country: US (occurrence: US)
  Receive Date: 20130814
  Receipt Date: 20130814
  Transmission Date: 20140515
  Serious: No
  Sender: FDA-Public Use
  Company Number: US-MYLANLABS-2013S1012320

PATIENT
  Sex: Male
  Weight: 90.72 kg

DRUGS (9)
  1. TRIFLUOPERAZINE HYDROCHLORIDE TABLETS, USP [Suspect]
     Indication: DEPRESSION
     Route: 048
     Dates: start: 2001, end: 2002
  2. TRIFLUOPERAZINE HYDROCHLORIDE TABLETS, USP [Suspect]
     Indication: ANXIETY
     Route: 048
     Dates: start: 2001, end: 2002
  3. TRIFLUOPERAZINE HYDROCHLORIDE TABLETS, USP [Suspect]
     Indication: SCHIZOPHRENIA
     Route: 048
     Dates: start: 2001, end: 2002
  4. PROZAC [Suspect]
     Indication: DEPRESSION
     Route: 048
     Dates: start: 1988
  5. FLUOXETINE HYDROCHLORIDE TABLETS [Suspect]
     Indication: DEPRESSION
     Route: 048
  6. KLONOPIN [Suspect]
     Route: 048
     Dates: start: 1994, end: 2007
  7. COGENTIN [Concomitant]
  8. VITAMIN C [Concomitant]
  9. DEPAKOTE [Concomitant]

REACTIONS (2)
  - Potentiating drug interaction [Recovering/Resolving]
  - Sedation [Recovering/Resolving]
